FAERS Safety Report 5508252-1 (Version None)
Quarter: 2007Q4

REPORT INFORMATION
  Report Type: 
  Country: None (occurrence: None)
  Receive Date: 20071106
  Receipt Date: 20070508
  Transmission Date: 20080405
  Serious: No
  Sender: FDA-Public Use
  Company Number: A0650470A

PATIENT
  Age: 4 Month
  Sex: Male

DRUGS (2)
  1. AMOXICILLIN [Suspect]
     Indication: EAR INFECTION
     Route: 048
  2. AUGMENTIN ES-600 [Suspect]
     Indication: EAR INFECTION
     Dosage: .5TSP TWICE PER DAY
     Route: 048
     Dates: start: 20070507

REACTIONS (3)
  - DIARRHOEA [None]
  - DRUG INEFFECTIVE [None]
  - OVERDOSE [None]
